FAERS Safety Report 23192445 (Version 1)
Quarter: 2023Q4

REPORT INFORMATION
  Report Type: Spontaneous
  Country: JP (occurrence: JP)
  Receive Date: 20231116
  Receipt Date: 20231116
  Transmission Date: 20240110
  Serious: No
  Sender: FDA-Public Use
  Company Number: JP-SCALL-2023-013217-1

PATIENT
  Age: 73 Year
  Sex: Male

DRUGS (3)
  1. DUTASTERIDE [Suspect]
     Active Substance: DUTASTERIDE
     Indication: Benign prostatic hyperplasia
     Dosage: 0.5 MG, QD
     Route: 065
  2. tamsulosin?hydrochloride (Harnal) [Concomitant]
     Dates: start: 20230130
  3. tosufloxacin tosilate (Ozex). [Concomitant]
     Dates: start: 20230130

REACTIONS (1)
  - Urine odour abnormal [Unknown]
